FAERS Safety Report 12069687 (Version 1)
Quarter: 2016Q1

REPORT INFORMATION
  Report Type: Report from Study
  Country: US (occurrence: US)
  Receive Date: 20160211
  Receipt Date: 20160211
  Transmission Date: 20160526
  Serious: No
  Sender: FDA-Public Use
  Company Number: US-AMGEN-USASL2016015103

PATIENT
  Age: 87 Year
  Sex: Male

DRUGS (1)
  1. ENBREL [Suspect]
     Active Substance: ETANERCEPT
     Indication: RHEUMATOID ARTHRITIS
     Dosage: 50 MG, QWK
     Route: 065
     Dates: end: 2009

REACTIONS (9)
  - Hypoacusis [Unknown]
  - Pain in extremity [Unknown]
  - Concussion [Unknown]
  - Joint swelling [Unknown]
  - Arthralgia [Unknown]
  - Balance disorder [Unknown]
  - Musculoskeletal pain [Unknown]
  - Cough [Unknown]
  - Fall [Unknown]
